FAERS Safety Report 25582108 (Version 1)
Quarter: 2025Q3

REPORT INFORMATION
  Report Type: Spontaneous
  Country: AU (occurrence: AU)
  Receive Date: 20250719
  Receipt Date: 20250719
  Transmission Date: 20251020
  Serious: Yes (Other)
  Sender: RANBAXY
  Company Number: AU-SUN PHARMACEUTICAL INDUSTRIES LTD-2025R1-518063

PATIENT
  Age: 71 Year
  Sex: Male

DRUGS (14)
  1. DOXORUBICIN [Suspect]
     Active Substance: DOXORUBICIN
     Indication: Product used for unknown indication
     Route: 042
     Dates: start: 20250124
  2. DOXORUBICIN [Suspect]
     Active Substance: DOXORUBICIN
     Route: 042
     Dates: start: 20250217
  3. VINCRISTINE [Suspect]
     Active Substance: VINCRISTINE
     Indication: Product used for unknown indication
     Route: 042
     Dates: start: 20250124
  4. PREDNISONE [Suspect]
     Active Substance: PREDNISONE
     Indication: Product used for unknown indication
     Dosage: 100 MILLIGRAM, OD
     Route: 048
     Dates: start: 20250124
  5. CYCLOPHOSPHAMIDE [Suspect]
     Active Substance: CYCLOPHOSPHAMIDE
     Indication: Product used for unknown indication
     Route: 042
     Dates: start: 20250124
  6. CYCLOPHOSPHAMIDE [Suspect]
     Active Substance: CYCLOPHOSPHAMIDE
     Route: 065
     Dates: start: 20250217
  7. ODRONEXTAMAB [Suspect]
     Active Substance: ODRONEXTAMAB
     Indication: Product used for unknown indication
     Route: 042
     Dates: start: 20250131
  8. ODRONEXTAMAB [Suspect]
     Active Substance: ODRONEXTAMAB
     Route: 042
     Dates: start: 20250131
  9. ODRONEXTAMAB [Suspect]
     Active Substance: ODRONEXTAMAB
     Route: 065
     Dates: start: 20250203
  10. ODRONEXTAMAB [Suspect]
     Active Substance: ODRONEXTAMAB
     Route: 065
  11. ODRONEXTAMAB [Suspect]
     Active Substance: ODRONEXTAMAB
     Route: 065
     Dates: start: 20250207
  12. ODRONEXTAMAB [Suspect]
     Active Substance: ODRONEXTAMAB
     Route: 065
     Dates: start: 20250210
  13. ODRONEXTAMAB [Suspect]
     Active Substance: ODRONEXTAMAB
     Route: 065
  14. ODRONEXTAMAB [Suspect]
     Active Substance: ODRONEXTAMAB
     Route: 065
     Dates: start: 20250217

REACTIONS (3)
  - Febrile neutropenia [Recovering/Resolving]
  - Hypotension [Unknown]
  - Immune effector cell-associated neurotoxicity syndrome [Unknown]

NARRATIVE: CASE EVENT DATE: 20250307
